FAERS Safety Report 7080357-6 (Version None)
Quarter: 2010Q4

REPORT INFORMATION
  Report Type: 
  Country: None (occurrence: None)
  Receive Date: 20101103
  Receipt Date: 20101027
  Transmission Date: 20110411
  Serious: Yes (Other)
  Sender: FDA-Public Use
  Company Number: US-JNJFOC-20101100699

PATIENT
  Age: 2 Year
  Sex: Male
  Weight: 12.25 kg

DRUGS (3)
  1. PEPCID COMPLETE [Suspect]
     Route: 048
  2. PEPCID COMPLETE [Suspect]
     Indication: ACCIDENTAL EXPOSURE
     Route: 048
  3. ALLERGY MEDICATION [Concomitant]

REACTIONS (2)
  - ACCIDENTAL DRUG INTAKE BY CHILD [None]
  - ACCIDENTAL OVERDOSE [None]
